FAERS Safety Report 15369781 (Version 1)
Quarter: 2018Q3

REPORT INFORMATION
  Report Type: Spontaneous
  Country: JP (occurrence: JP)
  Receive Date: 20180911
  Receipt Date: 20180911
  Transmission Date: 20181010
  Serious: Yes (Death, Other)
  Sender: FDA-Public Use
  Company Number: JP-TEVA-2018-JP-951973

PATIENT
  Age: 9 Decade
  Sex: Female

DRUGS (2)
  1. RITUXIMAB. [Suspect]
     Active Substance: RITUXIMAB
     Indication: B-CELL LYMPHOMA
     Route: 041
  2. BENDAMUSTINE HYDROCHLORIDE. [Suspect]
     Active Substance: BENDAMUSTINE HYDROCHLORIDE
     Indication: B-CELL LYMPHOMA
     Route: 042
     Dates: start: 20180725, end: 20180726

REACTIONS (4)
  - Prescribed underdose [Unknown]
  - Non-Hodgkin^s lymphoma [Unknown]
  - Pleural effusion [Unknown]
  - Cardiac tamponade [Fatal]

NARRATIVE: CASE EVENT DATE: 20180725
